FAERS Safety Report 5903335-6 (Version None)
Quarter: 2008Q3

REPORT INFORMATION
  Report Type: 
  Country: None (occurrence: None)
  Receive Date: 20080926
  Receipt Date: 20080818
  Transmission Date: 20090109
  Serious: No
  Sender: FDA-Public Use
  Company Number: ADE# 08-134

PATIENT
  Sex: Male
  Weight: 117.9352 kg

DRUGS (4)
  1. BACLOFEN [Suspect]
     Indication: CYST
     Dosage: SEE IMAGE
     Dates: start: 20080812, end: 20080818
  2. BACLOFEN [Suspect]
     Indication: DYSKINESIA
     Dosage: SEE IMAGE
     Dates: start: 20080812, end: 20080818
  3. BACLOFEN [Suspect]
     Indication: SPINAL CORD DISORDER
     Dosage: SEE IMAGE
     Dates: start: 20080812, end: 20080818
  4. / [Concomitant]

REACTIONS (2)
  - DRUG INEFFECTIVE [None]
  - THERAPEUTIC RESPONSE UNEXPECTED WITH DRUG SUBSTITUTION [None]
